FAERS Safety Report 24058473 (Version 2)
Quarter: 2024Q3

REPORT INFORMATION
  Report Type: Spontaneous
  Country: US (occurrence: US)
  Receive Date: 20240708
  Receipt Date: 20240721
  Transmission Date: 20241016
  Serious: Yes (Hospitalization)
  Sender: TEVA
  Company Number: US-TEVA-VS-3214508

PATIENT
  Age: 92 Year
  Sex: Female

DRUGS (1)
  1. DEXAMETHASONE [Suspect]
     Active Substance: DEXAMETHASONE
     Indication: COVID-19
     Route: 065

REACTIONS (6)
  - Adrenal insufficiency [Recovering/Resolving]
  - Hypotension [Recovering/Resolving]
  - Off label use [Unknown]
  - Mental status changes [Recovering/Resolving]
  - Anaemia [Recovering/Resolving]
  - Hypothermia [Recovering/Resolving]
